FAERS Safety Report 6913372-0 (Version None)
Quarter: 2010Q3

REPORT INFORMATION
  Report Type: 
  Country: None (occurrence: None)
  Receive Date: 20100809
  Receipt Date: 20100727
  Transmission Date: 20110219
  Serious: Yes (Hospitalization)
  Sender: FDA-Public Use
  Company Number: US-JNJFOC-20100800625

PATIENT
  Sex: Male

DRUGS (2)
  1. CHILDREN'S MOTRIN [Suspect]
     Route: 048
  2. CHILDREN'S MOTRIN [Suspect]
     Indication: PYREXIA
     Dosage: AS DIRECTED ON THE BOTTLE
     Route: 048

REACTIONS (4)
  - GAIT DISTURBANCE [None]
  - POSTURING [None]
  - PRODUCT QUALITY ISSUE [None]
  - STARING [None]
